FAERS Safety Report 9709006 (Version 2)
Quarter: 2013Q4

REPORT INFORMATION
  Report Type: Report from Study
  Country: US (occurrence: US)
  Receive Date: 20131125
  Receipt Date: 20131218
  Transmission Date: 20140711
  Serious: Yes (Other)
  Sender: FDA-Public Use
  Company Number: US-ABBVIE-13P-163-1171078-00

PATIENT
  Age: 53 Year
  Sex: 0
  Weight: 125.3 kg

DRUGS (6)
  1. HUMIRA [Suspect]
     Indication: CROHN^S DISEASE
     Dates: start: 2010
  2. BETAPACE [Concomitant]
     Indication: PRODUCT USED FOR UNKNOWN INDICATION
  3. LEVOTHYROXINE [Concomitant]
     Indication: PRODUCT USED FOR UNKNOWN INDICATION
  4. BENICAR [Concomitant]
     Indication: PRODUCT USED FOR UNKNOWN INDICATION
  5. ATARAX [Concomitant]
     Indication: PRODUCT USED FOR UNKNOWN INDICATION
  6. PROPRANOLOL [Concomitant]
     Indication: PRODUCT USED FOR UNKNOWN INDICATION

REACTIONS (6)
  - Rotator cuff syndrome [Recovered/Resolved]
  - Tendon rupture [Recovered/Resolved]
  - Musculoskeletal pain [Recovered/Resolved]
  - Fall [Recovered/Resolved]
  - Balance disorder [Unknown]
  - Exostosis [Unknown]
